FAERS Safety Report 12332188 (Version 1)
Quarter: 2016Q2

REPORT INFORMATION
  Report Type: Spontaneous
  Country: MY (occurrence: MY)
  Receive Date: 20160504
  Receipt Date: 20160504
  Transmission Date: 20160815
  Serious: Yes (Other)
  Sender: FDA-Public Use
  Company Number: MY-CORDEN PHARMA LATINA S.P.A.-MY-2016COR000136

PATIENT
  Age: 17 Year
  Sex: Female

DRUGS (2)
  1. PACLITAXEL. [Suspect]
     Active Substance: PACLITAXEL
     Indication: OVARIAN CANCER
     Dosage: UNK, 6 COURSES
  2. CARBOPLATIN. [Suspect]
     Active Substance: CARBOPLATIN
     Indication: OVARIAN CANCER
     Dosage: UNK, 6 COURSES

REACTIONS (2)
  - Ovarian germ cell teratoma [Recovered/Resolved]
  - Adnexa uteri mass [Recovered/Resolved]
